FAERS Safety Report 10730423 (Version 1)
Quarter: 2015Q1

REPORT INFORMATION
  Report Type: Spontaneous
  Country: US (occurrence: None)
  Receive Date: 20150121
  Receipt Date: 20150121
  Transmission Date: 20150721
  Serious: No
  Sender: FDA-Public Use
  Company Number: None

PATIENT
  Age: 23 Year
  Sex: Female

DRUGS (1)
  1. NEXPLANON [Suspect]
     Active Substance: ETONOGESTREL
     Indication: CONTRACEPTION
     Dosage: AS NEEDED GIVEN INTO/UNDER THE SKIN
     Route: 058
     Dates: start: 20140420

REACTIONS (2)
  - Depressed mood [None]
  - Anxiety [None]
